FAERS Safety Report 22386291 (Version 4)
Quarter: 2024Q4

REPORT INFORMATION
  Report Type: Spontaneous
  Country: JP (occurrence: JP)
  Receive Date: 20230530
  Receipt Date: 20241001
  Transmission Date: 20250114
  Serious: Yes (Hospitalization)
  Sender: AMGEN
  Company Number: JP-Vifor (International) Inc.-VIT-2023-03697

PATIENT
  Age: 76 Year
  Sex: Female

DRUGS (8)
  1. TAVNEOS [Suspect]
     Active Substance: AVACOPAN
     Indication: Microscopic polyangiitis
     Dosage: UNK
     Route: 048
     Dates: start: 20230307, end: 20230406
  2. RITUXIMAB [Concomitant]
     Active Substance: RITUXIMAB
     Indication: Microscopic polyangiitis
     Dosage: 375 MILLIGRAM/SQ. METER, QWK (INTRAVENOUS DRIP)
     Route: 065
     Dates: start: 20230307, end: 20230307
  3. RITUXIMAB [Concomitant]
     Active Substance: RITUXIMAB
     Dosage: 375 MILLIGRAM/SQ. METER, QWK (INTRAVENOUS DRIP)
     Route: 065
     Dates: start: 20230314, end: 20230314
  4. RITUXIMAB [Concomitant]
     Active Substance: RITUXIMAB
     Dosage: 375 MILLIGRAM/SQ. METER, QWK (INTRAVENOUS DRIP)
     Route: 065
     Dates: start: 20230321, end: 20230321
  5. RITUXIMAB [Concomitant]
     Active Substance: RITUXIMAB
     Dosage: 375 MILLIGRAM/SQ. METER, QWK (INTRAVENOUS DRIP)
     Route: 065
     Dates: start: 20230328, end: 20230328
  6. LEVOTHYROXINE [Concomitant]
     Active Substance: LEVOTHYROXINE
     Dosage: UNK
     Route: 065
  7. VONOPRAZAN FUMARATE [Concomitant]
     Active Substance: VONOPRAZAN FUMARATE
     Dosage: PER ORAL MEDICINE
     Route: 048
  8. ICOSAPENT [Concomitant]
     Active Substance: ICOSAPENT
     Dosage: UNK
     Route: 048

REACTIONS (1)
  - Drug-induced liver injury [Recovered/Resolved]

NARRATIVE: CASE EVENT DATE: 20230406
